FAERS Safety Report 6428836-6 (Version None)
Quarter: 2009Q4

REPORT INFORMATION
  Report Type: 
  Country: None (occurrence: None)
  Receive Date: 20091105
  Receipt Date: 20091102
  Transmission Date: 20100525
  Serious: Yes (Other)
  Sender: FDA-Public Use
  Company Number: US-GENENTECH-293208

PATIENT
  Sex: Male

DRUGS (17)
  1. XOLAIR [Suspect]
     Indication: ASTHMA
     Dosage: 300 MG, Q4W
     Route: 058
     Dates: start: 20090626
  2. PREDNISONE [Concomitant]
     Indication: ASTHMA
     Dosage: 15 MG, QD
  3. XOPENEX [Concomitant]
     Indication: ASTHMA
     Dosage: 1.25 MG, QID
  4. PULMICORT [Concomitant]
     Indication: ASTHMA
     Dosage: 0.5 MG, TID
  5. ATROVENT [Concomitant]
     Indication: ASTHMA
     Dosage: 0.5 MG, QID
  6. SINGULAIR [Concomitant]
     Indication: ASTHMA
     Dosage: 10 MG, QHS
  7. PULMICORT NEBULIZER [Concomitant]
     Indication: ASTHMA
     Dosage: 180 A?G, BID
  8. PRILOSEC [Concomitant]
     Indication: GASTROOESOPHAGEAL REFLUX DISEASE
     Dosage: 40 MG, BID
  9. ZYRTEC [Concomitant]
     Indication: HYPERSENSITIVITY
     Dosage: 10 MG, QAM
  10. NASACORT AQ [Concomitant]
     Indication: HYPERSENSITIVITY
     Dosage: 55 A?G, QAM
  11. DILTIAZEM [Concomitant]
     Indication: HYPERTENSION
     Dosage: 180 MG, QAM
  12. LISINOPRIL [Concomitant]
     Indication: HYPERTENSION
     Dosage: 5 MG, QAM
  13. HYDROCHLOROTHIAZIDE [Concomitant]
     Indication: HYPERTENSION
     Dosage: 12.5 MG, QAM
  14. HYDROCHLOROTHIAZIDE [Concomitant]
     Indication: OEDEMA
  15. ZOCOR [Concomitant]
     Indication: BLOOD CHOLESTEROL INCREASED
     Dosage: 40 MG, QD
  16. FOSAMAX [Concomitant]
     Indication: OSTEOPOROSIS
     Dosage: 70 MG, 1/WEEK
  17. CALCIUM CITRATE WITH D [Concomitant]
     Indication: OSTEOPOROSIS
     Dosage: 600 MG, BID

REACTIONS (3)
  - CHEST DISCOMFORT [None]
  - COUGH [None]
  - PRURITUS [None]
